FAERS Safety Report 6633028-1 (Version None)
Quarter: 2010Q1

REPORT INFORMATION
  Report Type: 
  Country: None (occurrence: None)
  Receive Date: 20100312
  Receipt Date: 20100301
  Transmission Date: 20100710
  Serious: Yes (Other)
  Sender: FDA-Public Use
  Company Number: PHHY2010IT07776

PATIENT
  Sex: Male

DRUGS (10)
  1. RASILEZ [Suspect]
     Indication: HYPERTENSION
     Dosage: 300 MG DAILY
     Route: 048
     Dates: start: 20091028, end: 20100115
  2. LACIPIL [Suspect]
     Indication: HYPERTENSION
     Dosage: 4 MG DAILY
     Route: 048
     Dates: start: 20090610, end: 20100115
  3. CASODEX [Concomitant]
     Indication: PROSTATE CANCER
     Dosage: 50 MG, UNK
     Route: 048
  4. LEUPROLIDE ACETATE [Concomitant]
     Indication: PROSTATE CANCER
     Route: 030
  5. LANTUS [Concomitant]
     Indication: DIABETES MELLITUS
     Route: 058
  6. APIDRA [Concomitant]
     Indication: DIABETES MELLITUS
     Route: 058
  7. SIMVASTATIN [Concomitant]
  8. ACETYLSALICYLIC ACID [Concomitant]
  9. IRBESARTAN [Concomitant]
  10. HYDROCHLOROTHIAZIDE [Concomitant]

REACTIONS (4)
  - CONDITION AGGRAVATED [None]
  - NEURODERMATITIS [None]
  - OEDEMA PERIPHERAL [None]
  - PRURITUS [None]
